FAERS Safety Report 14375020 (Version 1)
Quarter: 2018Q1

REPORT INFORMATION
  Report Type: Spontaneous
  Country: CA (occurrence: US)
  Receive Date: 20180110
  Receipt Date: 20180110
  Transmission Date: 20180509
  Serious: Yes (Death, Hospitalization)
  Sender: FDA-Public Use
  Company Number: None

PATIENT
  Age: 46 Year
  Sex: Male
  Weight: 75.7 kg

DRUGS (1)
  1. MEMANTINE HYDROCHLORIDE. [Suspect]
     Active Substance: MEMANTINE HYDROCHLORIDE
     Dates: end: 20171113

REACTIONS (6)
  - Vomiting [None]
  - Mucosal dryness [None]
  - Nausea [None]
  - Constipation [None]
  - Ileus [None]
  - Pallor [None]

NARRATIVE: CASE EVENT DATE: 20171207
